FAERS Safety Report 8837444 (Version 2)
Quarter: 2012Q4

REPORT INFORMATION
  Report Type: Report from Study
  Country: CA (occurrence: CA)
  Receive Date: 20121012
  Receipt Date: 20121019
  Transmission Date: 20130627
  Serious: Yes (Hospitalization, Other)
  Sender: FDA-Public Use
  Company Number: CA-ABBOTT-12P-028-0991565-00

PATIENT
  Age: 35 Year
  Sex: Male

DRUGS (1)
  1. HUMIRA [Suspect]
     Indication: DRUG LEVEL
     Route: 058
     Dates: start: 20120905

REACTIONS (2)
  - Small intestinal obstruction [Not Recovered/Not Resolved]
  - Superior mesenteric artery syndrome [Not Recovered/Not Resolved]
